FAERS Safety Report 9012997 (Version 1)
Quarter: 2013Q1

REPORT INFORMATION
  Report Type: Spontaneous
  Country: US (occurrence: US)
  Receive Date: 20130114
  Receipt Date: 20130114
  Transmission Date: 20140127
  Serious: Yes (Other)
  Sender: FDA-Public Use
  Company Number: US-ELI_LILLY_AND_COMPANY-US201301001219

PATIENT
  Age: 68 Year
  Sex: Male
  Weight: 79.37 kg

DRUGS (5)
  1. BYDUREON [Suspect]
     Indication: INSULIN-REQUIRING TYPE 2 DIABETES MELLITUS
     Dosage: 2 MG, WEEKLY (1/W)
     Route: 058
     Dates: start: 20121227
  2. BYETTA [Suspect]
     Indication: INSULIN-REQUIRING TYPE 2 DIABETES MELLITUS
     Dosage: 5 UG, BID
     Route: 058
     Dates: start: 2009
  3. BYETTA [Suspect]
     Dosage: 10 UG, BID
     Route: 058
     Dates: end: 2012
  4. BYETTA [Suspect]
     Dosage: 5 UG, BID
     Route: 058
     Dates: start: 2012
  5. METFORMIN [Concomitant]
     Indication: TYPE 2 DIABETES MELLITUS
     Dosage: 1000 MG, BID
     Route: 048

REACTIONS (3)
  - Atrial fibrillation [Unknown]
  - Blood glucose increased [Not Recovered/Not Resolved]
  - Weight decreased [Unknown]
